FAERS Safety Report 26061725 (Version 1)
Quarter: 2025Q4

REPORT INFORMATION
  Report Type: Spontaneous
  Country: EU (occurrence: EU)
  Receive Date: 20251118
  Receipt Date: 20251118
  Transmission Date: 20260118
  Serious: Yes (Other)
  Sender: AZURITY PHARMACEUTICALS
  Company Number: EU-AZURITY PHARMACEUTICALS, INC.-AZR202511-003469

PATIENT
  Age: 37 Year
  Sex: Male
  Weight: 97 kg

DRUGS (3)
  1. TRIPTORELIN [Suspect]
     Active Substance: TRIPTORELIN
     Indication: Libido disorder
     Dosage: 11.25 MILLIGRAM(S), IN 3 MONTH
     Route: 030
  2. VALIUM [Suspect]
     Active Substance: DIAZEPAM
     Indication: Anxiety
     Dosage: 30 DROP(S), IN 1 DAY (LONG TERM)
     Route: 048
  3. LEVOMEPROMAZINE [Suspect]
     Active Substance: LEVOMEPROMAZINE
     Indication: Mental disorder
     Dosage: 275 DROP(S), IN 1 DAY (LONG TERM)
     Route: 048

REACTIONS (2)
  - Urinary retention [Recovering/Resolving]
  - Priapism [Recovering/Resolving]

NARRATIVE: CASE EVENT DATE: 20240415
